FAERS Safety Report 5257409-6 (Version None)
Quarter: 2007Q1

REPORT INFORMATION
  Report Type: 
  Country: None (occurrence: None)
  Receive Date: 20070307
  Receipt Date: 20060828
  Transmission Date: 20070707
  Serious: No
  Sender: FDA-Public Use
  Company Number: US-GLAXOSMITHKLINE-A0613130A

PATIENT
  Age: 54 Year
  Sex: Female
  Weight: 77.3 kg

DRUGS (4)
  1. REQUIP [Suspect]
     Indication: RESTLESS LEGS SYNDROME
     Dosage: 1MG PER DAY
     Route: 048
     Dates: start: 20060710, end: 20060721
  2. LEXAPRO [Concomitant]
     Dosage: 10MG PER DAY
     Route: 048
  3. SYNTHROID [Concomitant]
     Dosage: .125MCG PER DAY
  4. PROTONIX [Concomitant]
     Dosage: 40MG PER DAY
     Route: 048

REACTIONS (1)
  - URTICARIA [None]
